FAERS Safety Report 7497688-8 (Version None)
Quarter: 2011Q2

REPORT INFORMATION
  Report Type: 
  Country: None (occurrence: None)
  Receive Date: 20110523
  Receipt Date: 20110519
  Transmission Date: 20111010
  Serious: Yes (Hospitalization)
  Sender: FDA-Public Use
  Company Number: GR-ABBOTT-11P-066-0727266-00

PATIENT
  Age: 64 Year
  Sex: Female

DRUGS (6)
  1. ARAVA [Concomitant]
     Indication: PSORIATIC ARTHROPATHY
  2. AMITRIPTYLINE HCL [Concomitant]
     Indication: FIBROMYALGIA
  3. HUMIRA [Suspect]
     Indication: PSORIATIC ARTHROPATHY
     Dates: start: 20100901, end: 20110401
  4. PANTOPRAZOLE [Concomitant]
     Indication: GASTROOESOPHAGEAL REFLUX PROPHYLAXIS
  5. DIAMICRON MR [Concomitant]
     Indication: DIABETES MELLITUS
  6. T4 [Concomitant]
     Indication: HYPOTHYROIDISM

REACTIONS (1)
  - DEEP VEIN THROMBOSIS [None]
